FAERS Safety Report 6600913-6 (Version None)
Quarter: 2010Q1

REPORT INFORMATION
  Report Type: 
  Country: None (occurrence: None)
  Receive Date: 20100224
  Receipt Date: 20100224
  Transmission Date: 20100710
  Serious: Yes (Hospitalization, Other)
  Sender: FDA-Public Use
  Company Number: None

PATIENT
  Age: 30 Year
  Sex: Male
  Weight: 138.3471 kg

DRUGS (1)
  1. AZITHROMYCIN [Suspect]
     Indication: UPPER RESPIRATORY TRACT INFECTION
     Dosage: 2 TABS 1ST DAY = 500 MG/DAY ORAL; THEN 1 TAB (250MG) 1 TAB /DAY FOR  4 DAYS ORAL
     Route: 048
     Dates: start: 20091105, end: 20091109

REACTIONS (1)
  - ABDOMINAL PAIN [None]
